FAERS Safety Report 5161033-3 (Version None)
Quarter: 2006Q4

REPORT INFORMATION
  Report Type: 
  Country: None (occurrence: None)
  Receive Date: 20061130
  Receipt Date: 20060930
  Transmission Date: 20070319
  Serious: Yes (Death, Other)
  Sender: FDA-Public Use
  Company Number: PHBS2006CN15586

PATIENT
  Age: 43 Year
  Sex: Male

DRUGS (2)
  1. PREDNISONE TAB [Concomitant]
  2. LOTENSIN [Suspect]
     Indication: LUPUS NEPHRITIS
     Dosage: 10 MG/DAY
     Route: 048
     Dates: start: 20051201, end: 20060601

REACTIONS (7)
  - COUGH [None]
  - DYSPNOEA [None]
  - GENERALISED OEDEMA [None]
  - LARYNGEAL OEDEMA [None]
  - LARYNGEAL STENOSIS [None]
  - NASOPHARYNGITIS [None]
  - TRACHEOSCOPY ABNORMAL [None]
